FAERS Safety Report 4264082-2 (Version None)
Quarter: 2004Q1

REPORT INFORMATION
  Report Type: 
  Country: None (occurrence: None)
  Receive Date: 20040105
  Receipt Date: 20031217
  Transmission Date: 20041129
  Serious: Yes (Death)
  Sender: FDA-Public Use
  Company Number: 188835

PATIENT
  Sex: Female
  Weight: 45.3597 kg

DRUGS (2)
  1. AVONEX [Suspect]
     Indication: MULTIPLE SCLEROSIS
     Dosage: 30 MCG QW IM
     Route: 030
     Dates: start: 19980101, end: 20020101
  2. UNKNOWN PAIN MEDICATION [Concomitant]

REACTIONS (2)
  - MULTIPLE SCLEROSIS [None]
  - URINARY TRACT INFECTION [None]
